FAERS Safety Report 13761856 (Version 2)
Quarter: 2017Q3

REPORT INFORMATION
  Report Type: Spontaneous
  Country: KR (occurrence: KR)
  Receive Date: 20170718
  Receipt Date: 20170821
  Transmission Date: 20171127
  Serious: Yes (Hospitalization, Other)
  Sender: FDA-Public Use
  Company Number: KR-SUN PHARMACEUTICAL INDUSTRIES LTD-2017R1-145614

PATIENT
  Age: 44 Year
  Sex: Male

DRUGS (11)
  1. HYALURONIDASE [Suspect]
     Active Substance: HYALURONIDASE
     Indication: SCIATICA
  2. BUPIVACAINE. [Suspect]
     Active Substance: BUPIVACAINE
     Indication: BACK PAIN
  3. HYALURONIDASE [Suspect]
     Active Substance: HYALURONIDASE
     Indication: BACK PAIN
  4. TRIAMCINOLONE [Suspect]
     Active Substance: TRIAMCINOLONE
     Indication: ANAESTHESIA
     Dosage: UNK
     Route: 065
  5. TRIAMCINOLONE [Suspect]
     Active Substance: TRIAMCINOLONE
     Indication: SCIATICA
  6. SALINE [Suspect]
     Active Substance: SODIUM CHLORIDE
     Indication: BACK PAIN
     Dosage: UNK
     Route: 065
  7. BUPIVACAINE. [Suspect]
     Active Substance: BUPIVACAINE
     Indication: ANAESTHESIA
     Dosage: UNK
     Route: 008
  8. BUPIVACAINE. [Suspect]
     Active Substance: BUPIVACAINE
     Indication: SCIATICA
  9. SALINE [Suspect]
     Active Substance: SODIUM CHLORIDE
     Indication: SCIATICA
  10. HYALURONIDASE [Suspect]
     Active Substance: HYALURONIDASE
     Indication: ANAESTHESIA
     Dosage: UNK
     Route: 065
  11. TRIAMCINOLONE [Suspect]
     Active Substance: TRIAMCINOLONE
     Indication: BACK PAIN

REACTIONS (1)
  - Cauda equina syndrome [Unknown]
